FAERS Safety Report 4739587-8 (Version None)
Quarter: 2005Q3

REPORT INFORMATION
  Report Type: 
  Country: None (occurrence: None)
  Receive Date: 20050810
  Receipt Date: 20050407
  Transmission Date: 20060218
  Serious: No
  Sender: FDA-Public Use
  Company Number: US-GLAXOSMITHKLINE-A0553171A

PATIENT
  Age: 60 Year
  Sex: Female

DRUGS (3)
  1. PAXIL [Suspect]
     Indication: DEPRESSION
     Dosage: 40MG TWICE PER DAY
     Route: 048
     Dates: start: 20050301
  2. LAMICTAL [Concomitant]
  3. SEROQUEL [Concomitant]

REACTIONS (3)
  - BODY TEMPERATURE DECREASED [None]
  - DRUG INEFFECTIVE [None]
  - TREMOR [None]
